FAERS Safety Report 7089736-4 (Version None)
Quarter: 2010Q4

REPORT INFORMATION
  Report Type: 
  Country: None (occurrence: None)
  Receive Date: 20101108
  Receipt Date: 20101104
  Transmission Date: 20110411
  Serious: Yes (Other)
  Sender: FDA-Public Use
  Company Number: DE-PFIZER INC-2010141103

PATIENT
  Age: 58 Year
  Sex: Male

DRUGS (1)
  1. ZOLOFT [Suspect]
     Dosage: UNK

REACTIONS (4)
  - CARDIOMYOPATHY [None]
  - HEADACHE [None]
  - OVERDOSE [None]
  - TACHYCARDIA [None]
